FAERS Safety Report 16373950 (Version 1)
Quarter: 2019Q2

REPORT INFORMATION
  Report Type: Spontaneous
  Country: US (occurrence: US)
  Receive Date: 20190530
  Receipt Date: 20190530
  Transmission Date: 20190711
  Serious: No
  Sender: FDA-Public Use
  Company Number: US-BRAINTREE LABORATORIES-190186

PATIENT
  Age: 72 Year
  Sex: Female
  Weight: 48.99 kg

DRUGS (1)
  1. NULYTELY [Suspect]
     Active Substance: POLYETHYLENE GLYCOL 3350\POTASSIUM CHLORIDE\SODIUM BICARBONATE\SODIUM CHLORIDE
     Indication: OFF LABEL USE
     Route: 065

REACTIONS (4)
  - Flatulence [None]
  - Abdominal discomfort [None]
  - Wrong technique in product usage process [None]
  - Eructation [None]
